FAERS Safety Report 8969820 (Version 1)
Quarter: 2012Q4

REPORT INFORMATION
  Report Type: 
  Country: US (occurrence: US)
  Receive Date: 20121218
  Receipt Date: 20121218
  Transmission Date: 20130627
  Serious: No
  Sender: FDA-Public Use
  Company Number: US-ABBOTT-11P-163-0838743-00

PATIENT
  Age: 56 Year
  Sex: Female
  Weight: 61.29 kg

DRUGS (3)
  1. PROMETRIUM [Suspect]
     Indication: HORMONE THERAPY
     Dates: start: 201104
  2. UNKNOWN ESTROGEN PATCH [Concomitant]
     Indication: HORMONE THERAPY
  3. ADVIAR [Concomitant]
     Indication: ASTHMA

REACTIONS (1)
  - Blood creatinine increased [Not Recovered/Not Resolved]
